FAERS Safety Report 8831856 (Version 3)
Quarter: 2013Q4

REPORT INFORMATION
  Report Type: Report from Study
  Country: US (occurrence: US)
  Receive Date: 20121008
  Receipt Date: 20131126
  Transmission Date: 20140711
  Serious: Yes (Hospitalization, Other)
  Sender: FDA-Public Use
  Company Number: US-ELI_LILLY_AND_COMPANY-US201206002516

PATIENT
  Age: 70 Year
  Sex: Male

DRUGS (24)
  1. TERIPARATIDE [Suspect]
     Indication: OSTEOPOROSIS
     Dosage: 20 UG, QD
     Route: 065
     Dates: start: 20120606
  2. TERIPARATIDE [Suspect]
     Dosage: 20 UG, QD
     Route: 065
     Dates: start: 20120806
  3. TERIPARATIDE [Suspect]
     Dosage: 20 UG, 4/W
     Route: 065
  4. TERIPARATIDE [Suspect]
     Dosage: 20 UG, QD
     Route: 065
  5. ENBREL [Concomitant]
     Dosage: 0.98 ML, WEEKLY (1/W)
  6. METHOTREXATE [Concomitant]
     Dosage: 20 MG, WEEKLY (1/W)
  7. HYDROCODONE [Concomitant]
     Indication: PAIN
     Dosage: UNK, QD
  8. ADVAIR [Concomitant]
     Dosage: UNK, BID
  9. PROAIR [Concomitant]
     Indication: ASTHMA
     Dosage: UNK, PRN
  10. FLUTICASONE [Concomitant]
     Dosage: 50 UG, QD
  11. XALATAN [Concomitant]
  12. RESTASIS [Concomitant]
  13. TERAZOSIN [Concomitant]
     Dosage: 5 MG, QD
  14. AZOR [Concomitant]
     Dosage: UNK, QD
  15. TRICOR [Concomitant]
     Dosage: 145 MG, QD
  16. WELCHOL [Concomitant]
     Dosage: 6.25 MG, EVERY 4 HRS
  17. NEXIUM [Concomitant]
  18. LEVITRA [Concomitant]
     Dosage: UNK, PRN
  19. FOLIC ACID [Concomitant]
     Dosage: 1 MG, QD
  20. BIOFLEX                            /00943602/ [Concomitant]
  21. GLUCOSAMINE [Concomitant]
     Dosage: UNK, BID
  22. CALCIUM CITRATE [Concomitant]
     Dosage: 630 MG, QD
  23. VITAMIN D NOS [Concomitant]
     Dosage: 1000 IU, BID
  24. TYLENOL PM [Concomitant]
     Dosage: UNK, EACH EVENING

REACTIONS (13)
  - Lung carcinoma cell type unspecified stage I [Unknown]
  - Pulmonary mass [Unknown]
  - Pneumothorax [Unknown]
  - Post procedural complication [Unknown]
  - Positron emission tomogram abnormal [Unknown]
  - Bone pain [Unknown]
  - Musculoskeletal pain [Unknown]
  - Myalgia [Unknown]
  - Arthralgia [Unknown]
  - Dizziness [Unknown]
  - Malaise [Unknown]
  - Inappropriate schedule of drug administration [Unknown]
  - Pain in extremity [Unknown]
